FAERS Safety Report 20735321 (Version 2)
Quarter: 2022Q2

REPORT INFORMATION
  Report Type: Report from Study
  Country: US (occurrence: US)
  Receive Date: 20220421
  Receipt Date: 20220425
  Transmission Date: 20220721
  Serious: No
  Sender: FDA-Public Use
  Company Number: US-NOVARTISTESTPH-NVSC2022US092120

PATIENT
  Age: 45 Year
  Sex: Male
  Weight: 102.06 kg

DRUGS (1)
  1. ENTRESTO [Suspect]
     Active Substance: SACUBITRIL\VALSARTAN
     Indication: Myocardial infarction
     Dosage: 1 DOSAGE FORM, QD
     Route: 048
     Dates: start: 202111

REACTIONS (4)
  - Anxiety [Not Recovered/Not Resolved]
  - Cough [Recovering/Resolving]
  - Wrong technique in product usage process [Not Recovered/Not Resolved]
  - Product use in unapproved indication [Unknown]

NARRATIVE: CASE EVENT DATE: 20211201
